FAERS Safety Report 6315211-8 (Version None)
Quarter: 2009Q3

REPORT INFORMATION
  Report Type: 
  Country: None (occurrence: None)
  Receive Date: 20090817
  Receipt Date: 20090805
  Transmission Date: 20100115
  Serious: Yes (Other)
  Sender: FDA-Public Use
  Company Number: 2009AP003177

PATIENT
  Age: 24 Year
  Sex: Male

DRUGS (6)
  1. PAROXETINE HCL [Suspect]
  2. FLUVOXAMINE MALEATE [Suspect]
  3. RISPERIDONE [Suspect]
  4. CLOMIPRAMINE HCL [Suspect]
  5. VENLAFAXINE HCL [Suspect]
  6. OLANZAPINE [Suspect]

REACTIONS (6)
  - CONSTIPATION [None]
  - DRUG INEFFECTIVE [None]
  - NIGHTMARE [None]
  - SOMNOLENCE [None]
  - SUICIDAL IDEATION [None]
  - WEIGHT INCREASED [None]
